FAERS Safety Report 4766466-2 (Version None)
Quarter: 2005Q3

REPORT INFORMATION
  Report Type: 
  Country: None (occurrence: None)
  Receive Date: 20050912
  Receipt Date: 20050224
  Transmission Date: 20060218
  Serious: Yes (Hospitalization, Disabling)
  Sender: FDA-Public Use
  Company Number: US-ROCHE-396674

PATIENT
  Age: 14 Year
  Sex: Female
  Weight: 59.9 kg

DRUGS (1)
  1. ACCUTANE [Suspect]
     Indication: ACNE
     Route: 048
     Dates: start: 19961127, end: 19970515

REACTIONS (17)
  - ANTINEUTROPHIL CYTOPLASMIC ANTIBODY POSITIVE [None]
  - ANXIETY [None]
  - CHEST DISCOMFORT [None]
  - COLITIS ULCERATIVE [None]
  - CROHN'S DISEASE [None]
  - DEPRESSION [None]
  - DYSPNOEA [None]
  - GASTROINTESTINAL DISORDER [None]
  - HEADACHE [None]
  - INFLAMMATORY BOWEL DISEASE [None]
  - INTESTINAL HAEMORRHAGE [None]
  - LIP DRY [None]
  - MULTI-ORGAN DISORDER [None]
  - PROCTITIS ULCERATIVE [None]
  - PYREXIA [None]
  - SHIFT TO THE LEFT [None]
  - WHITE BLOOD CELL COUNT INCREASED [None]
